FAERS Safety Report 13405748 (Version 2)
Quarter: 2017Q2

REPORT INFORMATION
  Report Type: Spontaneous
  Country: SE (occurrence: SE)
  Receive Date: 20170405
  Receipt Date: 20170411
  Transmission Date: 20170830
  Serious: Yes (Hospitalization, Other)
  Sender: FDA-Public Use
  Company Number: PHHY2017SE050113

PATIENT
  Age: 43 Year
  Sex: Female

DRUGS (3)
  1. DICLOFENAC [Suspect]
     Active Substance: DICLOFENAC
     Indication: PRODUCT USED FOR UNKNOWN INDICATION
     Dosage: ABOUT 90 TABLETS
     Route: 048
     Dates: start: 20160625, end: 20160625
  2. ALVEDON [Suspect]
     Active Substance: ACETAMINOPHEN
     Indication: PRODUCT USED FOR UNKNOWN INDICATION
     Dosage: ABOUT 100 TABLETS
     Route: 048
     Dates: start: 20160625, end: 20160625
  3. ALPOXEN [Suspect]
     Active Substance: NAPROXEN
     Indication: PRODUCT USED FOR UNKNOWN INDICATION
     Dosage: AROUND 115 TABLETS
     Route: 048
     Dates: start: 20160625, end: 20160625

REACTIONS (4)
  - Overdose [Unknown]
  - Analgesic drug level increased [Recovered/Resolved]
  - Toxicity to various agents [Unknown]
  - Suicide attempt [Unknown]
